FAERS Safety Report 25049036 (Version 1)
Quarter: 2025Q1

REPORT INFORMATION
  Report Type: Spontaneous
  Country: CN (occurrence: CN)
  Receive Date: 20250307
  Receipt Date: 20250307
  Transmission Date: 20250408
  Serious: Yes (Other)
  Sender: ROCHE
  Company Number: CN-ROCHE-10000219603

PATIENT
  Age: 59 Year
  Sex: Female
  Weight: 64 kg

DRUGS (5)
  1. BEVACIZUMAB [Suspect]
     Active Substance: BEVACIZUMAB
     Indication: Ovarian cancer
     Route: 042
     Dates: start: 20250207, end: 20250214
  2. GEMCITABINE HYDROCHLORIDE [Suspect]
     Active Substance: GEMCITABINE HYDROCHLORIDE
     Indication: Ovarian cancer
     Route: 042
     Dates: start: 20250207, end: 20250214
  3. FOLIC ACID [Concomitant]
     Active Substance: FOLIC ACID
  4. METHYLCOBALAMIN [Concomitant]
     Active Substance: METHYLCOBALAMIN
  5. FERROUS SUCCINATE [Concomitant]
     Active Substance: FERROUS SUCCINATE

REACTIONS (10)
  - White blood cell count decreased [Recovering/Resolving]
  - Neutrophil count decreased [Recovering/Resolving]
  - Platelet count decreased [Recovering/Resolving]
  - Myelosuppression [Unknown]
  - Hypertension [Unknown]
  - Sinus tachycardia [Unknown]
  - Coccydynia [Unknown]
  - Dyschezia [Unknown]
  - C-reactive protein increased [Unknown]
  - Rectal cancer [Unknown]

NARRATIVE: CASE EVENT DATE: 20250221
